FAERS Safety Report 21599215 (Version 1)
Quarter: 2022Q4

REPORT INFORMATION
  Report Type: Spontaneous
  Country: CO (occurrence: CO)
  Receive Date: 20221115
  Receipt Date: 20221115
  Transmission Date: 20230113
  Serious: Yes (Other)
  Sender: FDA-Public Use
  Company Number: CO-BAYER-2022P021165

PATIENT
  Age: 5 Month

DRUGS (1)
  1. VITRAKVI [Suspect]
     Active Substance: LAROTRECTINIB
     Indication: Congenital fibrosarcoma
     Dosage: 100 MG/M2, BID

REACTIONS (4)
  - Leukocytosis [None]
  - Neutrophilia [None]
  - Anaemia [None]
  - C-reactive protein increased [None]
